FAERS Safety Report 6122925-1 (Version None)
Quarter: 2009Q1

REPORT INFORMATION
  Report Type: 
  Country: None (occurrence: None)
  Receive Date: 20090318
  Receipt Date: 20080513
  Transmission Date: 20090719
  Serious: No
  Sender: FDA-Public Use
  Company Number: US-AMGEN-KDL279161

PATIENT
  Sex: Female

DRUGS (4)
  1. NEULASTA [Suspect]
     Indication: CHEMOTHERAPY
  2. MINOCIN [Concomitant]
  3. ADRIAMYCIN RDF [Concomitant]
  4. CYTOXAN [Concomitant]

REACTIONS (3)
  - RASH MACULO-PAPULAR [None]
  - RASH PRURITIC [None]
  - ULCER [None]
